FAERS Safety Report 10273478 (Version 1)
Quarter: 2014Q2

REPORT INFORMATION
  Report Type: Spontaneous
  Country: DE (occurrence: None)
  Receive Date: 20140630
  Receipt Date: 20140630
  Transmission Date: 20141212
  Serious: Yes (Other)
  Sender: FDA-Public Use
  Company Number: AUR-APL-2014-06870

PATIENT
  Sex: Female

DRUGS (2)
  1. QUETIAPINE (QUETIAPINE) UNKNOWN, UNKNOWN [Suspect]
     Indication: SCHIZOPHRENIA
     Dosage: 400 MG/DAY, TRANSPLACENTAL
     Route: 064
     Dates: start: 20130514, end: 20140212
  2. FOLIO (FOLIC ACID, POTASSIUM IODIDE) [Concomitant]

REACTIONS (2)
  - Hyperbilirubinaemia neonatal [None]
  - Foetal exposure during pregnancy [None]
